FAERS Safety Report 23287635 (Version 1)
Quarter: 2023Q4

REPORT INFORMATION
  Report Type: Spontaneous
  Country: US (occurrence: US)
  Receive Date: 20231212
  Receipt Date: 20231212
  Transmission Date: 20240109
  Serious: No
  Sender: FDA-Public Use
  Company Number: US-GLAXOSMITHKLINE-USCH2023057582

PATIENT

DRUGS (1)
  1. ADVIL PM NOS [Suspect]
     Active Substance: DIPHENHYDRAMINE\IBUPROFEN
     Indication: Insomnia
     Dosage: UNK

REACTIONS (2)
  - Ill-defined disorder [Unknown]
  - Product use in unapproved indication [Unknown]
